FAERS Safety Report 6318332-9 (Version None)
Quarter: 2009Q3

REPORT INFORMATION
  Report Type: 
  Country: None (occurrence: None)
  Receive Date: 20090821
  Receipt Date: 20090814
  Transmission Date: 20100115
  Serious: Yes (Death, Other)
  Sender: FDA-Public Use
  Company Number: US-PFIZER INC-2009216016

PATIENT
  Sex: Female
  Weight: 47.619 kg

DRUGS (4)
  1. REVATIO [Suspect]
     Indication: PULMONARY HYPERTENSION
     Dosage: 20 MG Q 8H
     Route: 048
  2. LEVOPHED [Concomitant]
     Dosage: UNK
  3. DOPAMINE [Concomitant]
     Dosage: UNK
  4. EPINEPHRINE [Concomitant]
     Dosage: UNK

REACTIONS (2)
  - RIGHT VENTRICULAR FAILURE [None]
  - SEPSIS [None]
